FAERS Safety Report 6260316-3 (Version None)
Quarter: 2009Q3

REPORT INFORMATION
  Report Type: 
  Country: None (occurrence: None)
  Receive Date: 20090706
  Receipt Date: 20090622
  Transmission Date: 20100115
  Serious: Yes (Hospitalization, Other)
  Sender: FDA-Public Use
  Company Number: PAR_03026_2009

PATIENT
  Age: 6 Year
  Sex: Male

DRUGS (3)
  1. IBUPROFEN [Suspect]
     Indication: PYREXIA
     Dosage: (100 MG 1X/6 HOURS, [20 MG/KG/DAY] ORAL)
     Route: 048
  2. PARACETAMOL (PARACETAMOL) [Suspect]
     Indication: PYREXIA
     Dosage: (DF ORAL)
     Route: 048
  3. ANTIBIOTICS (UNKNOWN) [Concomitant]

REACTIONS (7)
  - COAGULOPATHY [None]
  - CONDITION AGGRAVATED [None]
  - DEHYDRATION [None]
  - HAEMORRHAGIC DIATHESIS [None]
  - NEPHROPATHY TOXIC [None]
  - PLEURAL EFFUSION [None]
  - RENAL IMPAIRMENT [None]
